FAERS Safety Report 17477601 (Version 1)
Quarter: 2020Q1

REPORT INFORMATION
  Report Type: Report from Study
  Country: GB (occurrence: GB)
  Receive Date: 20200228
  Receipt Date: 20200228
  Transmission Date: 20200409
  Serious: Yes (Hospitalization)
  Sender: FDA-Public Use
  Company Number: GB-MYLANLABS-2020M1021398

PATIENT
  Age: 43 Year
  Sex: Female

DRUGS (50)
  1. DOCETAXEL. [Suspect]
     Active Substance: DOCETAXEL
     Indication: HER-2 POSITIVE BREAST CANCER
     Dosage: LOADING DOSE
     Route: 042
     Dates: start: 20160718
  2. OXYNORM [Concomitant]
     Active Substance: OXYCODONE HYDROCHLORIDE
     Dosage: 5 MILLIGRAM
     Route: 048
     Dates: start: 20170227, end: 20170227
  3. CO-AMOXICLAV                       /01000301/ [Concomitant]
     Active Substance: AMOXICILLIN\CLAVULANATE POTASSIUM
     Dosage: UNK
     Route: 042
     Dates: start: 20161223, end: 20161230
  4. CO-AMOXICLAV                       /01000301/ [Concomitant]
     Active Substance: AMOXICILLIN\CLAVULANATE POTASSIUM
     Dosage: 1875 MILLIGRAM, QD
     Route: 048
     Dates: start: 20161219, end: 20170101
  5. DIAZEPAM. [Concomitant]
     Active Substance: DIAZEPAM
     Dosage: 4 MILLIGRAM, QD
     Route: 048
     Dates: start: 20161022, end: 20161030
  6. DANAPAROID [Concomitant]
     Active Substance: DANAPAROID
     Dosage: 750 U
     Route: 058
     Dates: start: 20160921, end: 20170106
  7. HARTMANS [Concomitant]
     Dosage: 1000 MILLILITER
     Route: 042
     Dates: start: 20160908, end: 20161213
  8. TRASTUZUMAB. [Suspect]
     Active Substance: TRASTUZUMAB
     Indication: HER-2 POSITIVE BREAST CANCER
     Dosage: MAINTENANCE DOSE
     Route: 042
     Dates: start: 20160808, end: 20160808
  9. MAGNESIUM [Concomitant]
     Active Substance: MAGNESIUM
     Dosage: 20 OTHER
     Route: 042
     Dates: start: 20161115, end: 20161115
  10. CYCLIZINE [Concomitant]
     Active Substance: CYCLIZINE
     Dosage: 50 MILLIGRAM
     Route: 042
     Dates: start: 20161003, end: 20170326
  11. TRASTUZUMAB. [Suspect]
     Active Substance: TRASTUZUMAB
     Dosage: MAINTENANCE DOSE
     Route: 042
     Dates: start: 20160830, end: 20160830
  12. LANSOPRAZOLE. [Concomitant]
     Active Substance: LANSOPRAZOLE
     Dosage: 30 MILLIGRAM, QD
     Route: 048
     Dates: start: 20160908
  13. LOPERAMIDE [Concomitant]
     Active Substance: LOPERAMIDE
     Indication: DIARRHOEA
     Route: 048
     Dates: start: 20161230
  14. DIHYDROCODEINE [Concomitant]
     Active Substance: DIHYDROCODEINE
     Dosage: 30 MILLIGRAM, QD
     Route: 048
     Dates: start: 20160908
  15. MORPHINE [Concomitant]
     Active Substance: MORPHINE
     Dosage: 5 MILLIGRAM
     Route: 042
     Dates: start: 20161013, end: 20170321
  16. PARACETAMOL [Concomitant]
     Active Substance: ACETAMINOPHEN
     Dosage: 1 GRAM
     Route: 048
     Dates: start: 20160908, end: 20170327
  17. METRONIDAZOLE. [Concomitant]
     Active Substance: METRONIDAZOLE
     Dosage: 1200 MILLIGRAM, QD
     Route: 048
     Dates: start: 20160908, end: 20161202
  18. TRASTUZUMAB. [Suspect]
     Active Substance: TRASTUZUMAB
     Dosage: LOADING DOSE
     Route: 042
     Dates: start: 20160718, end: 20160808
  19. CITALOPRAM [Concomitant]
     Active Substance: CITALOPRAM HYDROBROMIDE
     Indication: DEPRESSION
     Dosage: 20 MILLIGRAM, QD
     Route: 048
     Dates: start: 20160921
  20. DIAZEPAM. [Concomitant]
     Active Substance: DIAZEPAM
     Dosage: 1.25 MILLIGRAM, QD
     Route: 048
     Dates: start: 20161018, end: 20161018
  21. MAGNESIUM [Concomitant]
     Active Substance: MAGNESIUM
     Dosage: 20 OTHER
     Route: 042
     Dates: start: 20161109, end: 20161109
  22. MAGNASPARTATE [Concomitant]
     Indication: BLOOD MAGNESIUM DECREASED
     Dosage: 10 OTHER
     Route: 065
     Dates: start: 20160908
  23. DIHYDROCODEINE [Concomitant]
     Active Substance: DIHYDROCODEINE
     Dosage: 30 MILLIGRAM
     Route: 048
     Dates: start: 20161101, end: 20170326
  24. MORPHINE SULPHATE [Concomitant]
     Active Substance: MORPHINE SULFATE
     Dosage: 50 MILLIGRAM
     Route: 048
     Dates: start: 20161222, end: 20170225
  25. DOCETAXEL. [Suspect]
     Active Substance: DOCETAXEL
     Dosage: MAINTENANCE DOSE
     Route: 042
     Dates: start: 20160808, end: 20160808
  26. CITALOPRAM [Concomitant]
     Active Substance: CITALOPRAM HYDROBROMIDE
     Dosage: 20 MILLIGRAM, QD
     Route: 048
     Dates: start: 20161212, end: 20170327
  27. EPOPROSTENOL. [Concomitant]
     Active Substance: EPOPROSTENOL
     Dosage: 60 MICROGRAM
     Route: 042
     Dates: start: 20160910, end: 20160926
  28. TOLTERODINE [Concomitant]
     Active Substance: TOLTERODINE
     Dosage: 4 MILLIGRAM, QD
     Route: 048
     Dates: start: 20161118, end: 20161130
  29. PERTUZUMAB. [Suspect]
     Active Substance: PERTUZUMAB
     Dosage: LOADING DOSE
     Route: 042
     Dates: start: 20160718
  30. DOCETAXEL. [Suspect]
     Active Substance: DOCETAXEL
     Dosage: MAINTENANCE DOSE
     Route: 042
     Dates: start: 20160830, end: 20160830
  31. PARACETAMOL [Concomitant]
     Active Substance: ACETAMINOPHEN
     Indication: PAIN
     Route: 042
     Dates: start: 20160908, end: 20170327
  32. CALCIUM GLUCONATE. [Concomitant]
     Active Substance: CALCIUM GLUCONATE
     Dosage: 10 MILLILITER, QD
     Route: 042
     Dates: start: 20160930, end: 20160930
  33. CO-AMOXICLAV                       /01000301/ [Concomitant]
     Active Substance: AMOXICILLIN\CLAVULANATE POTASSIUM
     Dosage: 1875 MILLIGRAM, QD
     Route: 048
     Dates: start: 20161229, end: 20170112
  34. LANSOPRAZOLE. [Concomitant]
     Active Substance: LANSOPRAZOLE
     Dosage: 30 MILLIGRAM, QD
     Route: 048
     Dates: start: 20161005, end: 20170106
  35. CYCLIZINE [Concomitant]
     Active Substance: CYCLIZINE
     Indication: NAUSEA
     Dosage: 150 MILLIGRAM, QD
     Route: 048
     Dates: start: 20160908
  36. TEICOPLANIN [Concomitant]
     Active Substance: TEICOPLANIN
     Dosage: 500 MILLIGRAM, QD
     Route: 042
     Dates: start: 20161013, end: 20161216
  37. MEROPENEM. [Concomitant]
     Active Substance: MEROPENEM
     Dosage: 1 GRAM
     Route: 042
     Dates: start: 20161010, end: 20161107
  38. MAGNESIUM ASPARTATE [Concomitant]
     Active Substance: MAGNESIUM ASPARTATE
     Dosage: UNK UNK, QD
     Route: 048
     Dates: start: 20161229, end: 20161230
  39. CODEINE [Concomitant]
     Active Substance: CODEINE
     Indication: PAIN
     Dosage: 30 MILLIGRAM, QD
     Route: 048
     Dates: start: 20170106, end: 20170106
  40. PERTUZUMAB. [Suspect]
     Active Substance: PERTUZUMAB
     Indication: HER-2 POSITIVE BREAST CANCER
     Dosage: MAINTENANCE DOSE
     Route: 042
     Dates: start: 20160808, end: 20160830
  41. ORAMORPH [Concomitant]
     Active Substance: MORPHINE SULFATE
     Dosage: 10 MILLIGRAM, QD
     Route: 048
     Dates: start: 20161214, end: 20161214
  42. TAZOCIN [Concomitant]
     Active Substance: PIPERACILLIN SODIUM\TAZOBACTAM SODIUM
     Dosage: 4.5 GRAM, QD
     Route: 042
     Dates: start: 20160908, end: 20161219
  43. OXYCODONE [Concomitant]
     Active Substance: OXYCODONE
     Dosage: 5 MILLIGRAM
     Route: 048
     Dates: start: 20160919, end: 20170223
  44. MAGNESIUM [Concomitant]
     Active Substance: MAGNESIUM
     Dosage: 20 OTHER
     Route: 042
     Dates: start: 20161121, end: 20161121
  45. BISOPROLOL [Concomitant]
     Active Substance: BISOPROLOL
     Route: 048
     Dates: start: 20160930, end: 20160930
  46. ONDANSETRON [Concomitant]
     Active Substance: ONDANSETRON
     Indication: NAUSEA
     Dosage: 4 MILLIGRAM
     Route: 048
     Dates: start: 20160908, end: 20170325
  47. CALCIUM GLUCONATE. [Concomitant]
     Active Substance: CALCIUM GLUCONATE
     Dosage: 10 MILLILITER, QD
     Route: 042
     Dates: start: 20160909, end: 20160909
  48. CALCIUM GLUCONATE. [Concomitant]
     Active Substance: CALCIUM GLUCONATE
     Dosage: 1 GRAM, QD
     Route: 042
     Dates: start: 20160925, end: 20160925
  49. NORMAL SALINE [Concomitant]
     Active Substance: SODIUM CHLORIDE
     Dosage: 20 OTHER
     Route: 042
     Dates: start: 20161029, end: 20161029
  50. METOCLOPRAMIDE. [Concomitant]
     Active Substance: METOCLOPRAMIDE
     Dosage: 30 MILLIGRAM, QD
     Route: 042
     Dates: start: 20160909, end: 20161005

REACTIONS (1)
  - Stoma site pain [Recovered/Resolved]

NARRATIVE: CASE EVENT DATE: 20161212
